FAERS Safety Report 13826090 (Version 1)
Quarter: 2017Q3

REPORT INFORMATION
  Report Type: Report from Study
  Country: US (occurrence: US)
  Receive Date: 20170802
  Receipt Date: 20170802
  Transmission Date: 20171127
  Serious: Yes (Hospitalization)
  Sender: FDA-Public Use
  Company Number: PHEH2017US023132

PATIENT
  Age: 67 Year
  Sex: Male
  Weight: 48.98 kg

DRUGS (18)
  1. INFLIXIMAB [Suspect]
     Active Substance: INFLIXIMAB
     Dosage: 160 MG,
     Route: 042
     Dates: start: 20160126, end: 20160126
  2. INFLIXIMAB [Suspect]
     Active Substance: INFLIXIMAB
     Dosage: 160 MG, UNK
     Route: 042
     Dates: start: 20160323, end: 20160323
  3. INFLIXIMAB [Suspect]
     Active Substance: INFLIXIMAB
     Dosage: 157 MG,
     Route: 042
     Dates: start: 20150714, end: 20150714
  4. INFLIXIMAB [Suspect]
     Active Substance: INFLIXIMAB
     Indication: RHEUMATOID ARTHRITIS
     Dosage: 157 MG,
     Route: 042
     Dates: start: 20150630, end: 20150630
  5. MULTIVITAMIN [Concomitant]
     Active Substance: VITAMINS
     Indication: SUPPLEMENTATION THERAPY
     Dosage: 2000 OT, UNK
     Route: 065
  6. AMOXICILLIN CAPSULES, USP [Suspect]
     Active Substance: AMOXICILLIN
     Indication: HELICOBACTER INFECTION
     Dosage: 500 MG, BID
     Route: 048
     Dates: start: 20160609, end: 20160611
  7. METHOTREXATE. [Concomitant]
     Active Substance: METHOTREXATE
     Dosage: UNK
     Route: 065
     Dates: start: 20160721
  8. INFLIXIMAB [Suspect]
     Active Substance: INFLIXIMAB
     Dosage: 157 MG,
     Route: 042
     Dates: start: 20151006, end: 20151006
  9. METHOTREXATE. [Concomitant]
     Active Substance: METHOTREXATE
     Indication: RHEUMATOID ARTHRITIS
     Dosage: UNK
     Route: 065
     Dates: start: 20141016, end: 20160606
  10. FOLIC ACID. [Concomitant]
     Active Substance: FOLIC ACID
     Indication: SUPPLEMENTATION THERAPY
     Dosage: UNK
     Route: 065
     Dates: start: 2005
  11. TRAMADOL. [Concomitant]
     Active Substance: TRAMADOL
     Indication: RHEUMATOID ARTHRITIS
     Dosage: UNK
     Route: 065
     Dates: start: 2014
  12. ASPIRIN. [Concomitant]
     Active Substance: ASPIRIN
     Indication: PROPHYLAXIS
     Dosage: UNK
     Route: 065
     Dates: start: 20150601
  13. CLARITHROMYCIN TABLETS USP [Suspect]
     Active Substance: CLARITHROMYCIN
     Indication: HELICOBACTER INFECTION
     Dosage: 500 MG, BID
     Route: 048
     Dates: start: 20160609, end: 20160611
  14. INFLIXIMAB [Suspect]
     Active Substance: INFLIXIMAB
     Dosage: 160 MG, UNK
     Route: 042
     Dates: start: 20160517, end: 20160517
  15. PREDNISONE. [Concomitant]
     Active Substance: PREDNISONE
     Indication: RHEUMATOID ARTHRITIS
     Dosage: UNK
     Route: 065
     Dates: start: 2005
  16. PREVACID [Concomitant]
     Active Substance: LANSOPRAZOLE
     Indication: DYSPEPSIA
     Dosage: UNK
     Route: 065
     Dates: start: 20150730
  17. INFLIXIMAB [Suspect]
     Active Substance: INFLIXIMAB
     Dosage: 157 MG,
     Route: 042
     Dates: start: 20150811, end: 20150811
  18. INFLIXIMAB [Suspect]
     Active Substance: INFLIXIMAB
     Dosage: 157 MG,
     Route: 042
     Dates: start: 20151201, end: 20151201

REACTIONS (12)
  - Clostridium difficile infection [Recovered/Resolved]
  - Gastrointestinal disorder [Recovering/Resolving]
  - Pain [Recovering/Resolving]
  - Cholecystitis [Recovered/Resolved]
  - Colitis [Recovering/Resolving]
  - Cholelithiasis [Recovering/Resolving]
  - Weight increased [Unknown]
  - Abdominal pain [Recovering/Resolving]
  - Oesophagitis [Recovering/Resolving]
  - Helicobacter infection [Recovered/Resolved]
  - Asthenia [Recovering/Resolving]
  - Dyspepsia [Recovering/Resolving]

NARRATIVE: CASE EVENT DATE: 20160606
